FAERS Safety Report 7469183-3 (Version None)
Quarter: 2011Q2

REPORT INFORMATION
  Report Type: 
  Country: None (occurrence: None)
  Receive Date: 20110503
  Receipt Date: 20110503
  Transmission Date: 20111010
  Serious: No
  Sender: FDA-Public Use
  Company Number: None

PATIENT
  Sex: Female
  Weight: 71.8 kg

DRUGS (1)
  1. ZINC CHLORIDE [Suspect]
     Indication: MINERAL SUPPLEMENTATION
     Dosage: 30 MG DAILY ORAL
     Route: 048

REACTIONS (7)
  - ABDOMINAL PAIN UPPER [None]
  - DIARRHOEA [None]
  - BODY TEMPERATURE DECREASED [None]
  - ASTHENIA [None]
  - TABLET PHYSICAL ISSUE [None]
  - GASTROINTESTINAL PAIN [None]
  - NAUSEA [None]
